FAERS Safety Report 9015674 (Version 1)
Quarter: 2013Q1

REPORT INFORMATION
  Report Type: Spontaneous
  Country: GB (occurrence: None)
  Receive Date: 20130102
  Receipt Date: 20130102
  Transmission Date: 20140127
  Serious: Yes (Other)
  Sender: FDA-Public Use
  Company Number: 1534816

PATIENT
  Age: 62 Year
  Sex: Male
  Weight: 78.9 kg

DRUGS (2)
  1. (OXALIPLATIN) [Suspect]
     Indication: COLORECTAL CANCER
     Route: 042
     Dates: start: 20121203, end: 20121203
  2. (CAPECITABINE) [Concomitant]

REACTIONS (6)
  - Fatigue [None]
  - Dyspnoea [None]
  - Malaise [None]
  - Feeling hot [None]
  - Cold sweat [None]
  - Abdominal pain [None]
